FAERS Safety Report 26138257 (Version 2)
Quarter: 2025Q4

REPORT INFORMATION
  Report Type: Spontaneous
  Country: JP (occurrence: JP)
  Receive Date: 20251210
  Receipt Date: 20251223
  Transmission Date: 20260117
  Serious: Yes (Hospitalization)
  Sender: AMGEN
  Company Number: JP-BEH-2025228647

PATIENT
  Age: 65 Year
  Sex: Male

DRUGS (1)
  1. TAVNEOS [Suspect]
     Active Substance: AVACOPAN
     Indication: Microscopic polyangiitis
     Dosage: 20 MG, BID
     Route: 048

REACTIONS (2)
  - Spinal stenosis [Unknown]
  - Intentional underdose [Unknown]
